FAERS Safety Report 5133393-0 (Version None)
Quarter: 2006Q4

REPORT INFORMATION
  Report Type: 
  Country: None (occurrence: None)
  Receive Date: 20061020
  Receipt Date: 20061020
  Transmission Date: 20070319
  Serious: Yes (Other)
  Sender: FDA-Public Use
  Company Number: None

PATIENT
  Sex: Female
  Weight: 111.1313 kg

DRUGS (4)
  1. HYDROCODONE BITARTRATE + ACETAMINOPHEN [Suspect]
     Indication: PAIN MANAGEMENT
     Dosage: 120 4XDAY
     Dates: start: 20060815, end: 20060911
  2. HYDROCODONE BITARTRATE + ACETAMINOPHEN [Suspect]
     Indication: SPINAL FRACTURE
     Dosage: 120 4XDAY
     Dates: start: 20060815, end: 20060911
  3. HYDROCODONE BITARTRATE + ACETAMINOPHEN [Suspect]
     Indication: PAIN MANAGEMENT
     Dosage: 120 4XDAY
     Dates: start: 20060912, end: 20061011
  4. HYDROCODONE BITARTRATE + ACETAMINOPHEN [Suspect]
     Indication: SPINAL FRACTURE
     Dosage: 120 4XDAY
     Dates: start: 20060912, end: 20061011

REACTIONS (2)
  - DRUG EFFECT DECREASED [None]
  - PHARMACEUTICAL PRODUCT COMPLAINT [None]
